FAERS Safety Report 22329196 (Version 1)
Quarter: 2023Q2

REPORT INFORMATION
  Report Type: Spontaneous
  Country: US (occurrence: None)
  Receive Date: 20230517
  Receipt Date: 20230517
  Transmission Date: 20230722
  Serious: No
  Sender: FDA-Public Use
  Company Number: US-ROCHE-3249625

PATIENT
  Age: 26 Year

DRUGS (1)
  1. EVRYSDI [Suspect]
     Active Substance: RISDIPLAM
     Indication: Spinal muscular atrophy
     Dosage: ONGOING: UNKNOWN?SECOND DOSE ON 27/SEP/2020
     Route: 065
     Dates: start: 20200925

REACTIONS (6)
  - Insomnia [Unknown]
  - Muscle twitching [Unknown]
  - Fatigue [Unknown]
  - Brain fog [Unknown]
  - Abdominal pain upper [Unknown]
  - Pyrexia [Unknown]

NARRATIVE: CASE EVENT DATE: 20200925
